FAERS Safety Report 4618791-3 (Version None)
Quarter: 2005Q1

REPORT INFORMATION
  Report Type: 
  Country: None (occurrence: None)
  Receive Date: 20050323
  Receipt Date: 20050310
  Transmission Date: 20050727
  Serious: No
  Sender: FDA-Public Use
  Company Number: B0374241A

PATIENT
  Age: 38 Year
  Sex: Female

DRUGS (4)
  1. CEFTIN [Suspect]
     Indication: UPPER RESPIRATORY TRACT INFECTION
     Dosage: VAGINAL
     Route: 067
  2. THEOPHYLLINE [Concomitant]
  3. TERFENADINE [Concomitant]
  4. SALBUTAMOL SULPHATE [Concomitant]

REACTIONS (10)
  - ACCIDENTAL EXPOSURE [None]
  - BLOOD PRESSURE SYSTOLIC INCREASED [None]
  - DRUG HYPERSENSITIVITY [None]
  - OEDEMA GENITAL [None]
  - OXYGEN SATURATION DECREASED [None]
  - RESPIRATORY RATE INCREASED [None]
  - THERAPY NON-RESPONDER [None]
  - THROAT TIGHTNESS [None]
  - TRANSMISSION OF DRUG VIA SEMEN [None]
  - WHEEZING [None]
